FAERS Safety Report 6172662-2 (Version None)
Quarter: 2009Q2

REPORT INFORMATION
  Report Type: 
  Country: None (occurrence: None)
  Receive Date: 20090430
  Receipt Date: 20090422
  Transmission Date: 20091009
  Serious: Yes (Life-Threatening)
  Sender: FDA-Public Use
  Company Number: GB-RANBAXY-2009RR-23672

PATIENT
  Age: 26 Year
  Sex: Female
  Weight: 57.2 kg

DRUGS (8)
  1. IBUPROFEN [Suspect]
     Dosage: 9.6 G, UNK
  2. PARACETAMOL [Suspect]
     Dosage: 12 G, UNK
  3. ANADIN EXTRA [Suspect]
     Dosage: 8 DF, UNK
  4. CHAMPIX [Suspect]
     Indication: SMOKING CESSATION THERAPY
     Dosage: UNK
     Route: 048
     Dates: start: 20090309, end: 20090330
  5. BECLOMETHASONE DIPROPIONATE [Concomitant]
  6. DIANETTE [Concomitant]
  7. SALBUTAMOL [Concomitant]
  8. YASMIN [Concomitant]

REACTIONS (3)
  - ABDOMINAL PAIN [None]
  - INTENTIONAL OVERDOSE [None]
  - NAUSEA [None]
